FAERS Safety Report 9800878 (Version 1)
Quarter: 2014Q1

REPORT INFORMATION
  Report Type: Spontaneous
  Country: GB (occurrence: GB)
  Receive Date: 20140107
  Receipt Date: 20140107
  Transmission Date: 20141002
  Serious: Yes (Life-Threatening)
  Sender: FDA-Public Use
  Company Number: GB-DRREDDYS-GER/UKI/14/0036892

PATIENT
  Age: 57 Year
  Sex: Male
  Weight: 90 kg

DRUGS (2)
  1. TERBINAFINE [Suspect]
     Indication: FUNGAL INFECTION
     Route: 048
     Dates: start: 20130924, end: 20131111
  2. PHENOBARBITAL [Concomitant]
     Indication: EPILEPSY

REACTIONS (8)
  - Renal failure acute [Recovered/Resolved]
  - Hepatic function abnormal [Recovered/Resolved]
  - Dermatitis exfoliative [Recovering/Resolving]
  - Groin pain [Unknown]
  - Respiratory failure [Recovered/Resolved]
  - Thrombocytopenia [Recovered/Resolved]
  - Orchitis [Unknown]
  - Atrial fibrillation [Unknown]
